FAERS Safety Report 12575925 (Version 1)
Quarter: 2016Q3

REPORT INFORMATION
  Report Type: Spontaneous
  Country: PT (occurrence: PT)
  Receive Date: 20160720
  Receipt Date: 20160720
  Transmission Date: 20161109
  Serious: Yes (Other)
  Sender: FDA-Public Use
  Company Number: PT-DEPOMED, INC.-PT-2016DEP011472

PATIENT
  Age: 72 Year
  Sex: Female

DRUGS (1)
  1. DICLOFENAC POTASSIUM. [Suspect]
     Active Substance: DICLOFENAC POTASSIUM
     Indication: PYREXIA
     Dosage: 75MG / 3ML, ONCE
     Route: 058

REACTIONS (2)
  - Skin necrosis [Unknown]
  - Erythema [Unknown]
